FAERS Safety Report 7083742-1 (Version None)
Quarter: 2010Q4

REPORT INFORMATION
  Report Type: 
  Country: None (occurrence: None)
  Receive Date: 20101103
  Receipt Date: 20101103
  Transmission Date: 20110411
  Serious: Yes (Death)
  Sender: FDA-Public Use
  Company Number: None

PATIENT
  Age: 56 Year
  Sex: Male

DRUGS (7)
  1. EMTRICITABINE (EMTRIVA) [Suspect]
     Indication: HIV INFECTION
     Dosage: 200 MG QD PO
     Route: 048
     Dates: start: 20050616, end: 20100518
  2. TENOFOVIR DISOPROXIL FUMARATE (VIREAD) [Suspect]
     Indication: HIV INFECTION
     Dosage: 300 MG QD PO
     Route: 048
     Dates: start: 20051202, end: 20100518
  3. DILTIAZEM [Concomitant]
  4. GEMFIBROZIL [Concomitant]
  5. ASPIRIN [Concomitant]
  6. SIMVASTATIN [Concomitant]
  7. TRIAMTERENE HCL [Concomitant]

REACTIONS (6)
  - BLOOD ALKALINE PHOSPHATASE INCREASED [None]
  - DIABETES MELLITUS INADEQUATE CONTROL [None]
  - DIABETIC KETOACIDOSIS [None]
  - HAEMOGLOBIN DECREASED [None]
  - LYMPHOCYTE COUNT DECREASED [None]
  - PANCREATITIS [None]
